FAERS Safety Report 6448389-6 (Version None)
Quarter: 2009Q4

REPORT INFORMATION
  Report Type: 
  Country: None (occurrence: None)
  Receive Date: 20091120
  Receipt Date: 20091109
  Transmission Date: 20100525
  Serious: Yes (Hospitalization)
  Sender: FDA-Public Use
  Company Number: PHHY2009JP47502

PATIENT
  Sex: Female

DRUGS (2)
  1. VOLTAREN [Suspect]
     Indication: RHEUMATOID ARTHRITIS
     Route: 048
  2. RHEUMATREX [Concomitant]
     Indication: RHEUMATOID ARTHRITIS
     Route: 048

REACTIONS (15)
  - BLOOD PRESSURE SYSTOLIC DECREASED [None]
  - C-REACTIVE PROTEIN INCREASED [None]
  - CELLULITIS [None]
  - DEPRESSED LEVEL OF CONSCIOUSNESS [None]
  - DISSEMINATED INTRAVASCULAR COAGULATION [None]
  - HEART RATE INCREASED [None]
  - HEPATIC FUNCTION ABNORMAL [None]
  - OEDEMA PERIPHERAL [None]
  - OXYGEN SATURATION [None]
  - RENAL IMPAIRMENT [None]
  - RESPIRATORY FAILURE [None]
  - SEPTIC SHOCK [None]
  - SKIN NECROSIS [None]
  - STREPTOCOCCAL INFECTION [None]
  - WHITE BLOOD CELL COUNT DECREASED [None]
